FAERS Safety Report 24352919 (Version 2)
Quarter: 2024Q3

REPORT INFORMATION
  Report Type: Spontaneous
  Country: FR (occurrence: FR)
  Receive Date: 20240923
  Receipt Date: 20240930
  Transmission Date: 20241016
  Serious: Yes (Hospitalization, Other)
  Sender: ELI LILLY AND CO
  Company Number: FR-ELI_LILLY_AND_COMPANY-FR202409010358

PATIENT
  Age: 72 Year
  Sex: Male

DRUGS (2)
  1. TRULICITY [Suspect]
     Active Substance: DULAGLUTIDE
     Indication: Diabetes mellitus
     Dosage: 3 MG, UNKNOWN
     Route: 065
     Dates: start: 202301
  2. OZEMPIC [Suspect]
     Active Substance: SEMAGLUTIDE
     Indication: Product used for unknown indication
     Dosage: UNK UNK, UNKNOWN
     Route: 065

REACTIONS (7)
  - Gallbladder disorder [Unknown]
  - Lithiasis [Unknown]
  - Cholelithiasis [Unknown]
  - Abdominal pain [Unknown]
  - Rash [Unknown]
  - Weight decreased [Unknown]
  - Flatulence [Unknown]

NARRATIVE: CASE EVENT DATE: 20240829
